FAERS Safety Report 7306315-1 (Version None)
Quarter: 2011Q1

REPORT INFORMATION
  Report Type: 
  Country: None (occurrence: None)
  Receive Date: 20110119
  Receipt Date: 20100623
  Transmission Date: 20110831
  Serious: Yes (Life-Threatening, Hospitalization, Disabling)
  Sender: FDA-Public Use
  Company Number: A-US2010-37666

PATIENT
  Age: 78 Year
  Sex: Female

DRUGS (2)
  1. TRACLEER [Suspect]
     Indication: PULMONARY ARTERIAL HYPERTENSION
     Dosage: 125 MG, BID, ORAL
     Route: 048
     Dates: start: 20100205, end: 20100612
  2. COUMADIN [Concomitant]

REACTIONS (7)
  - LUNG INFECTION [None]
  - CHEST PAIN [None]
  - CARDIAC FAILURE [None]
  - PYREXIA [None]
  - PNEUMONIA [None]
  - DYSPNOEA [None]
  - CHILLS [None]
